FAERS Safety Report 6198697-1 (Version None)
Quarter: 2009Q2

REPORT INFORMATION
  Report Type: 
  Country: None (occurrence: None)
  Receive Date: 20090521
  Receipt Date: 20090513
  Transmission Date: 20091009
  Serious: Yes (Hospitalization)
  Sender: FDA-Public Use
  Company Number: PHHY2009ES18112

PATIENT
  Age: 53 Year
  Sex: Male

DRUGS (5)
  1. SANDIMMUNE [Suspect]
     Indication: RENAL TRANSPLANT
     Dosage: 500 MG
     Route: 048
     Dates: start: 19980918
  2. ENALAPRIL MALEATE [Interacting]
     Indication: HYPERTENSION
     Dosage: 2.5 MG
     Route: 048
     Dates: end: 20090204
  3. CELLCEPT [Interacting]
     Indication: RENAL TRANSPLANT
     Dosage: 3 G
     Route: 048
     Dates: start: 19980918
  4. COLCHICINE [Interacting]
     Indication: GOUT
     Dosage: 2 MG
     Route: 048
     Dates: start: 20090121, end: 20090125
  5. CARDURA [Concomitant]

REACTIONS (7)
  - DEHYDRATION [None]
  - DIARRHOEA [None]
  - DRUG INTERACTION [None]
  - GOUT [None]
  - HYPERTENSION [None]
  - RENAL FAILURE ACUTE [None]
  - RENAL IMPAIRMENT [None]
